FAERS Safety Report 8450658-5 (Version None)
Quarter: 2012Q2

REPORT INFORMATION
  Report Type: 
  Country: None (occurrence: None)
  Receive Date: 20120615
  Receipt Date: 20120615
  Transmission Date: 20120825
  Serious: No
  Sender: FDA-Public Use
  Company Number: None

PATIENT
  Age: 64 Year
  Sex: Female

DRUGS (1)
  1. TEMODAR [Suspect]
     Indication: COMA
     Dosage: 240MG DAILY PO
     Route: 048
     Dates: start: 20120125

REACTIONS (2)
  - DYSPNOEA [None]
  - CHEST DISCOMFORT [None]
